FAERS Safety Report 7497137-X (Version None)
Quarter: 2011Q2

REPORT INFORMATION
  Report Type: 
  Country: None (occurrence: None)
  Receive Date: 20110523
  Receipt Date: 20110513
  Transmission Date: 20111010
  Serious: Yes (Death, Hospitalization, Other)
  Sender: FDA-Public Use
  Company Number: MX-SANOFI-AVENTIS-2011SA029721

PATIENT
  Age: 63 Year
  Sex: Male

DRUGS (2)
  1. ORAL ANTIDIABETICS [Suspect]
     Indication: TYPE 2 DIABETES MELLITUS
     Route: 048
     Dates: end: 20110101
  2. LANTUS [Suspect]
     Indication: TYPE 2 DIABETES MELLITUS
     Route: 058
     Dates: start: 20110101, end: 20110225

REACTIONS (2)
  - RENAL FAILURE [None]
  - HYPERGLYCAEMIA [None]
